FAERS Safety Report 5281689-4 (Version None)
Quarter: 2007Q1

REPORT INFORMATION
  Report Type: 
  Country: None (occurrence: None)
  Receive Date: 20061218
  Receipt Date: 20060222
  Transmission Date: 20070707
  Serious: Yes (Other)
  Sender: FDA-Public Use
  Company Number: 2006-PI114

PATIENT
  Age: 68 Year
  Sex: Female
  Weight: 62.1428 kg

DRUGS (5)
  1. CHLORAPREP WITH TINT [Suspect]
     Dosage: ONCE, TOPICAL
     Route: 061
  2. REGLAN [Concomitant]
  3. ZANTAC [Concomitant]
  4. VERSED [Concomitant]
  5. CEFAZOLIN [Concomitant]

REACTIONS (1)
  - SKIN IRRITATION [None]
